FAERS Safety Report 5485320-4 (Version None)
Quarter: 2007Q4

REPORT INFORMATION
  Report Type: 
  Country: None (occurrence: None)
  Receive Date: 20071010
  Receipt Date: 20071010
  Transmission Date: 20080405
  Serious: Yes (Other)
  Sender: FDA-Public Use
  Company Number: None

PATIENT
  Age: 52 Year
  Sex: Female
  Weight: 61.2356 kg

DRUGS (1)
  1. PIROXICAM [Suspect]
     Indication: ARTHRITIS
     Dosage: 20 MG  1X DAY  PO
     Route: 048
     Dates: start: 20060510, end: 20060515

REACTIONS (11)
  - ABDOMINAL DISCOMFORT [None]
  - ACTIVITIES OF DAILY LIVING IMPAIRED [None]
  - ARTHRALGIA [None]
  - FATIGUE [None]
  - FLUID RETENTION [None]
  - HEPATIC FUNCTION ABNORMAL [None]
  - HEPATITIS [None]
  - IMPAIRED WORK ABILITY [None]
  - OEDEMA [None]
  - PYREXIA [None]
  - TINNITUS [None]
